FAERS Safety Report 23192731 (Version 1)
Quarter: 2023Q4

REPORT INFORMATION
  Report Type: Spontaneous
  Country: US (occurrence: US)
  Receive Date: 20231116
  Receipt Date: 20231116
  Transmission Date: 20240109
  Serious: No
  Sender: FDA-Public Use
  Company Number: US-SA-SAC20231108001581

PATIENT
  Age: 60 Year
  Sex: Female

DRUGS (1)
  1. DUPIXENT [Suspect]
     Active Substance: DUPILUMAB
     Indication: Asthma
     Dosage: UNK
     Route: 058
     Dates: start: 20231005, end: 20231106

REACTIONS (3)
  - Rash erythematous [Unknown]
  - Injection site vesicles [Recovering/Resolving]
  - Rash pruritic [Unknown]

NARRATIVE: CASE EVENT DATE: 20231102
